FAERS Safety Report 24336200 (Version 1)
Quarter: 2024Q3

REPORT INFORMATION
  Report Type: Report from Study
  Country: US (occurrence: US)
  Receive Date: 20240919
  Receipt Date: 20240919
  Transmission Date: 20241017
  Serious: No
  Sender: ROCHE
  Company Number: US-ROCHE-3517771

PATIENT
  Age: 67 Year
  Sex: Female

DRUGS (19)
  1. TAMIFLU [Suspect]
     Active Substance: OSELTAMIVIR PHOSPHATE
     Indication: Pulmonary fibrosis
     Route: 065
  2. DELTASONE [Concomitant]
     Active Substance: PREDNISONE
  3. LIPITOR [Concomitant]
     Active Substance: ATORVASTATIN CALCIUM
  4. UROXATRAL [Concomitant]
     Active Substance: ALFUZOSIN HYDROCHLORIDE
  5. VITAMIN D3 [Concomitant]
     Active Substance: CHOLECALCIFEROL
  6. ASPIRIN [Concomitant]
     Active Substance: ASPIRIN
  7. ATENOLOL [Concomitant]
     Active Substance: ATENOLOL
  8. IMITREX [Concomitant]
     Active Substance: SUMATRIPTAN SUCCINATE
  9. FLOMAX [Concomitant]
     Active Substance: TAMSULOSIN HYDROCHLORIDE
  10. BRILINTA [Concomitant]
     Active Substance: TICAGRELOR
  11. SHINGRIX [Concomitant]
     Active Substance: RECOMBINANT VARICELLA ZOSTER VIRUS (VZV) GLYCOPROTEIN E
  12. CYANOCOBALAMIN [Concomitant]
     Active Substance: CYANOCOBALAMIN
  13. MOTRIN [Concomitant]
     Active Substance: IBUPROFEN
  14. INDOCIN [Concomitant]
     Active Substance: INDOMETHACIN
  15. NIZORAL [Concomitant]
     Active Substance: KETOCONAZOLE
  16. LEVAQUIN [Concomitant]
     Active Substance: LEVOFLOXACIN
  17. LIDODERM [Concomitant]
     Active Substance: LIDOCAINE
  18. ROBAXIN [Concomitant]
     Active Substance: METHOCARBAMOL
  19. NITROSTAT [Concomitant]
     Active Substance: NITROGLYCERIN

REACTIONS (9)
  - Dyspnoea [Unknown]
  - Cough [Unknown]
  - Pain [Unknown]
  - Anxiety [Unknown]
  - Platelet count decreased [Unknown]
  - COVID-19 [Unknown]
  - Pneumonia [Unknown]
  - Dyspnoea [Unknown]
  - Influenza [Unknown]
